FAERS Safety Report 4351793-3 (Version None)
Quarter: 2004Q2

REPORT INFORMATION
  Report Type: 
  Country: None (occurrence: None)
  Receive Date: 20040429
  Receipt Date: 20040305
  Transmission Date: 20050107
  Serious: No
  Sender: FDA-Public Use
  Company Number: 2004-113758-NL

PATIENT
  Age: 24 Year
  Sex: Female
  Weight: 97.7 kg

DRUGS (3)
  1. NUVARING [Suspect]
     Indication: CONTRACEPTION
     Dates: start: 20040218
  2. TUBERCULOSES INJECTION [Concomitant]
  3. DEPAKOTE [Concomitant]

REACTIONS (1)
  - METRORRHAGIA [None]
